FAERS Safety Report 8796653 (Version 1)
Quarter: 2012Q4

REPORT INFORMATION
  Report Type: 
  Country: CH (occurrence: CH)
  Receive Date: 20120920
  Receipt Date: 20120920
  Transmission Date: 20130627
  Serious: Yes (Hospitalization, Other)
  Sender: FDA-Public Use
  Company Number: CH-ASTRAZENECA-2012SE71287

PATIENT
  Age: 66 Year
  Sex: Male

DRUGS (8)
  1. ANTRAMUPS [Suspect]
     Indication: GASTROOESOPHAGEAL REFLUX DISEASE
     Route: 048
  2. BISOPROLOL FUMARATE [Suspect]
     Indication: ESSENTIAL HYPERTENSION
     Dosage: 10 MG, 1.5 PER DAY
     Route: 048
     Dates: start: 20120803
  3. CITALOPRAM [Suspect]
     Route: 048
  4. DILZEM [Suspect]
     Indication: ESSENTIAL HYPERTENSION
     Route: 048
     Dates: start: 20120803, end: 20120809
  5. DILZEM [Suspect]
     Indication: ESSENTIAL HYPERTENSION
     Route: 048
     Dates: start: 20120810, end: 20120810
  6. XARELTO [Concomitant]
     Route: 048
  7. SIMVASTATIN [Concomitant]
     Route: 048
  8. CODIOVAN [Concomitant]
     Route: 048

REACTIONS (2)
  - Syncope [Recovered/Resolved]
  - Atrial fibrillation [Unknown]
